FAERS Safety Report 25009378 (Version 3)
Quarter: 2025Q3

REPORT INFORMATION
  Report Type: Spontaneous
  Country: US (occurrence: US)
  Receive Date: 20250225
  Receipt Date: 20250821
  Transmission Date: 20251020
  Serious: No
  Sender: PFIZER
  Company Number: US-PFIZER INC-PV202400022368

PATIENT
  Age: 78 Year
  Sex: Female

DRUGS (1)
  1. XALKORI [Suspect]
     Active Substance: CRIZOTINIB
     Indication: Bronchial neoplasm
     Dosage: 200 MG, 2X/DAY (TAKE ONE CAPSULE BY MOUTH TWO TIMES A DAY)
     Route: 048

REACTIONS (1)
  - Lymphoedema [Unknown]
